FAERS Safety Report 6245205-2 (Version None)
Quarter: 2009Q2

REPORT INFORMATION
  Report Type: 
  Country: None (occurrence: None)
  Receive Date: 20090625
  Receipt Date: 20090619
  Transmission Date: 20091009
  Serious: Yes (Life-Threatening, Hospitalization, Other)
  Sender: FDA-Public Use
  Company Number: PHHO2009IL07744

PATIENT
  Sex: Female

DRUGS (41)
  1. CYCLOSPORINE [Suspect]
     Indication: RENAL TRANSPLANT
     Dosage: 350 MG DAILY
     Route: 048
     Dates: start: 20040110
  2. CYCLOSPORINE [Suspect]
     Dosage: 300 MG BID
     Route: 048
     Dates: start: 20040116, end: 20040122
  3. CYCLOSPORINE [Suspect]
     Dosage: 200 MG BID
     Route: 048
     Dates: start: 20040203, end: 20040218
  4. CYCLOSPORINE [Suspect]
     Dosage: 400 MG DAILY
     Dates: start: 20040224, end: 20090423
  5. MYCOPHENOLATE MOFETIL [Suspect]
     Indication: RENAL TRANSPLANT
     Dosage: 1000 MG BID
     Route: 048
     Dates: start: 20040110, end: 20040218
  6. MYCOPHENOLATE MOFETIL [Suspect]
     Dosage: 500 MG DAILY
     Dates: start: 20040224
  7. MYCOPHENOLATE MOFETIL [Suspect]
     Dosage: 1000 MG DAILY
     Dates: start: 20040315, end: 20040322
  8. MYCOPHENOLATE MOFETIL [Suspect]
     Dosage: 250 MG DAILY
     Dates: start: 20040411
  9. MYCOPHENOLATE MOFETIL [Suspect]
     Dosage: 500 MG DAILY
     Dates: start: 20040420
  10. MYCOPHENOLATE MOFETIL [Suspect]
     Dosage: 2000 MG DAILY
     Dates: start: 20040423
  11. MYCOPHENOLATE MOFETIL [Suspect]
     Dosage: 1000 MG DAILY
     Dates: start: 20040531
  12. TACROLIMUS [Suspect]
     Indication: RENAL TRANSPLANT
     Dosage: 2 MG BID
     Dates: start: 20040423
  13. PREDNISONE [Suspect]
     Indication: RENAL TRANSPLANT
     Dosage: 20 MG DAILY
     Route: 048
     Dates: start: 20040112, end: 20040114
  14. PREDNISONE [Suspect]
     Dosage: 20 MG DAILY
     Dates: start: 20090118, end: 20090119
  15. PREDNISONE [Suspect]
     Dosage: 20 MG DAILY
     Dates: start: 20090123, end: 20090218
  16. PREDNISONE [Suspect]
     Dosage: 20 MG DAILY
     Dates: start: 20090225, end: 20090423
  17. PREDNISONE [Suspect]
     Dosage: 20 MG DAILY
     Dates: start: 20090426
  18. HEPARIN [Suspect]
     Dosage: 2500 IU TID
     Dates: start: 20040110, end: 20040515
  19. HYDROCORTISONE [Suspect]
     Indication: RENAL TRANSPLANT
     Dosage: 50 MG TID
     Route: 042
     Dates: start: 20040423, end: 20040426
  20. SOLU-MEDROL [Suspect]
     Indication: RENAL TRANSPLANT
     Dosage: 500 MG DAILY
     Route: 042
     Dates: start: 20040110, end: 20040118
  21. SOLU-MEDROL [Suspect]
     Dosage: 250 MG DAILY
     Dates: start: 20040119, end: 20040130
  22. SOLU-MEDROL [Suspect]
     Dosage: 125 MG DAILY
     Dates: start: 20040218, end: 20040225
  23. SOLU-MEDROL [Suspect]
     Dosage: 500 MG DAILY
     Dates: start: 20040422, end: 20040427
  24. SOLU-MEDROL [Suspect]
     Dosage: 500 MG DAILY
     Dates: start: 20040504, end: 20040506
  25. AMIODARONE [Concomitant]
  26. AMLODIPINE [Concomitant]
  27. CEFEPIME [Concomitant]
  28. CEFTRIAXONE [Concomitant]
  29. CIPROFLOXACIN [Concomitant]
  30. EPOGEN [Concomitant]
  31. FUROSEMIDE INTENSOL [Concomitant]
  32. GANCICLOVIR [Concomitant]
  33. GLIBENCLAMIDE [Concomitant]
  34. INSULIN [Concomitant]
  35. NIFEDIPINE [Concomitant]
  36. PROPRANOLOL HYDROCHLORIDE [Concomitant]
  37. SIMVASTATIN [Concomitant]
  38. SULFAMETHOXAZOLE AND TRIMETHOPRIM [Concomitant]
  39. VALGANCICLOVIR HCL [Concomitant]
  40. VANCOMYCIN [Concomitant]
  41. VERAPAMIL [Concomitant]

REACTIONS (19)
  - ABDOMINAL PAIN [None]
  - ABSCESS DRAINAGE [None]
  - ACINETOBACTER INFECTION [None]
  - BRONCHITIS [None]
  - CLOSTRIDIAL INFECTION [None]
  - COUGH [None]
  - DIARRHOEA [None]
  - HAEMATOMA EVACUATION [None]
  - HYPERGLYCAEMIA [None]
  - INTRA-ABDOMINAL HAEMORRHAGE [None]
  - KLEBSIELLA INFECTION [None]
  - LOSS OF CONSCIOUSNESS [None]
  - PELVIC ABSCESS [None]
  - PERITONITIS [None]
  - PSEUDOMEMBRANOUS COLITIS [None]
  - PSEUDOMONAS INFECTION [None]
  - PYREXIA [None]
  - SEPSIS [None]
  - SHOCK HAEMORRHAGIC [None]
